FAERS Safety Report 7497543-3 (Version None)
Quarter: 2011Q2

REPORT INFORMATION
  Report Type: 
  Country: None (occurrence: None)
  Receive Date: 20110523
  Receipt Date: 20110506
  Transmission Date: 20111010
  Serious: No
  Sender: FDA-Public Use
  Company Number: US-B.I. PHARMACEUTICALS,INC./RIDGEFIELD-2011-BP-12564BP

PATIENT
  Age: 75 Year
  Sex: Female

DRUGS (5)
  1. PRADAXA [Suspect]
     Dosage: 150 MG
     Route: 048
     Dates: start: 20110316
  2. PRADAXA [Suspect]
     Indication: DEEP VEIN THROMBOSIS
     Dosage: 300 MG
     Route: 048
     Dates: start: 20110124, end: 20110315
  3. NIACIN [Concomitant]
  4. PHENOBARB [Concomitant]
  5. TOPROL-XL [Concomitant]

REACTIONS (4)
  - DYSPEPSIA [None]
  - OESOPHAGEAL DISCOMFORT [None]
  - BURNING SENSATION [None]
  - DYSPNOEA [None]
